FAERS Safety Report 7739836-8 (Version None)
Quarter: 2011Q3

REPORT INFORMATION
  Report Type: 
  Country: None (occurrence: None)
  Receive Date: 20110906
  Receipt Date: 20110822
  Transmission Date: 20111222
  Serious: Yes (Death, Hospitalization)
  Sender: FDA-Public Use
  Company Number: 2011MA012320

PATIENT
  Age: 77 Year
  Sex: Female

DRUGS (12)
  1. FLECAINIDE ACETATE [Concomitant]
  2. NITROGLYCERIN COMP. [Concomitant]
  3. OMEPRAZOLE [Concomitant]
  4. DIGOXIN [Suspect]
  5. LANTUS [Concomitant]
  6. FUROSEMIDE [Concomitant]
  7. DIGOXIN [Suspect]
     Dates: end: 20070101
  8. ESTROGENS CONJUGATED [Concomitant]
  9. AMARYL [Concomitant]
  10. LEVOTHYROXINE SODIUM [Concomitant]
  11. CELEXA [Concomitant]
  12. AMIODARONE HCL [Concomitant]

REACTIONS (24)
  - AORTIC STENOSIS [None]
  - INFUSION SITE EXTRAVASATION [None]
  - CORONARY ARTERY OCCLUSION [None]
  - TORSADE DE POINTES [None]
  - RENAL FAILURE ACUTE [None]
  - ANAEMIA [None]
  - SYNCOPE [None]
  - VENTRICULAR TACHYCARDIA [None]
  - DYSPNOEA [None]
  - INFUSION SITE PHLEBITIS [None]
  - AORTIC VALVE CALCIFICATION [None]
  - CORONARY ARTERY STENOSIS [None]
  - CARDIAC MURMUR [None]
  - DIASTOLIC DYSFUNCTION [None]
  - LEFT VENTRICULAR DYSFUNCTION [None]
  - INJURY [None]
  - PULMONARY CONGESTION [None]
  - CORONARY ARTERY DISEASE [None]
  - CARDIO-RESPIRATORY ARREST [None]
  - MITRAL VALVE INCOMPETENCE [None]
  - LOSS OF CONSCIOUSNESS [None]
  - WEIGHT INCREASED [None]
  - AORTIC CALCIFICATION [None]
  - MYOCARDIAL INFARCTION [None]
